FAERS Safety Report 6935290-4 (Version None)
Quarter: 2010Q3

REPORT INFORMATION
  Report Type: 
  Country: None (occurrence: None)
  Receive Date: 20100822
  Receipt Date: 20100716
  Transmission Date: 20110219
  Serious: Yes (Other)
  Sender: FDA-Public Use
  Company Number: PHEH2006US15179

PATIENT
  Sex: Male

DRUGS (7)
  1. ZOMETA [Suspect]
     Dosage: UNK
  2. HYDROCHLOROTHIAZIDE [Concomitant]
     Indication: BLOOD PRESSURE
     Dosage: 25 MG 1 TABLET DAILY
     Route: 048
  3. ACYCLOVIR [Concomitant]
     Dosage: 800 MG 1 TABLET DAILY
     Route: 048
  4. ASPIRIN [Concomitant]
     Route: 048
  5. GLYBURIDE [Concomitant]
     Indication: DIABETES MELLITUS
     Dosage: 2.5 MG 1 TABLET EVERY MORNING AND 0.5 TAB EVERY EVENING
     Route: 048
  6. LISINOPRIL [Concomitant]
     Indication: BLOOD PRESSURE
     Dosage: 10 MG 1 TABLET DAILY
  7. METFORMIN [Concomitant]
     Indication: DIABETES MELLITUS
     Dosage: 500 MG 0.5 TABLET TWICE DAILY
     Route: 048

REACTIONS (16)
  - ANHEDONIA [None]
  - ANXIETY [None]
  - BONE DENSITY DECREASED [None]
  - BONE LESION [None]
  - CHEST PAIN [None]
  - DECREASED INTEREST [None]
  - GENERAL PHYSICAL HEALTH DETERIORATION [None]
  - INTERVERTEBRAL DISC SPACE NARROWING [None]
  - MULTIPLE MYELOMA [None]
  - NASAL SEPTUM DEVIATION [None]
  - ORAL DISORDER [None]
  - OSTEOARTHRITIS [None]
  - OSTEONECROSIS OF JAW [None]
  - PAIN [None]
  - TOOTH DEPOSIT [None]
  - TOOTH LOSS [None]
